FAERS Safety Report 7206887-1 (Version None)
Quarter: 2011Q1

REPORT INFORMATION
  Report Type: 
  Country: None (occurrence: None)
  Receive Date: 20110103
  Receipt Date: 20101227
  Transmission Date: 20110831
  Serious: Yes (Other)
  Sender: FDA-Public Use
  Company Number: JP-SANOFI-AVENTIS-2010SA077932

PATIENT
  Age: 36 Year
  Sex: Female

DRUGS (2)
  1. ALLEGRA [Suspect]
     Route: 048
     Dates: start: 20090901, end: 20091001
  2. ALL OTHER THERAPEUTIC PRODUCTS [Suspect]

REACTIONS (2)
  - DRUG ERUPTION [None]
  - LIVER DISORDER [None]
